FAERS Safety Report 4286696-6 (Version None)
Quarter: 2004Q1

REPORT INFORMATION
  Report Type: 
  Country: None (occurrence: None)
  Receive Date: 20040204
  Receipt Date: 20040127
  Transmission Date: 20041129
  Serious: Yes (Hospitalization)
  Sender: FDA-Public Use
  Company Number: 2004-112386-NL

PATIENT
  Age: 62 Year
  Sex: Male

DRUGS (1)
  1. MIRTAZAPINE [Suspect]
     Dosage: 45 MG/30 MG, ORAL
     Route: 048

REACTIONS (2)
  - DYSURIA [None]
  - PROSTATE CANCER [None]
